FAERS Safety Report 9384671 (Version 3)
Quarter: 2013Q3

REPORT INFORMATION
  Report Type: Spontaneous
  Country: JP (occurrence: JP)
  Receive Date: 20130705
  Receipt Date: 20130814
  Transmission Date: 20140515
  Serious: Yes (Hospitalization, Other)
  Sender: FDA-Public Use
  Company Number: JP-PFIZER INC-2013197551

PATIENT
  Age: 86 Year
  Sex: Female

DRUGS (6)
  1. ALDACTONE A [Suspect]
     Dosage: 25 MG, 1X/DAY
     Route: 048
  2. NEXIUM [Suspect]
     Dosage: 10 MG, DAILY
     Route: 048
  3. DEPAS [Suspect]
     Dosage: 0.5 MG, DAILY
     Route: 048
  4. LASIX [Concomitant]
     Dosage: 80 MG, DAILY
     Route: 048
  5. FEBURIC [Concomitant]
     Dosage: 20 MG, DAILY
     Route: 048
  6. FRANDOL [Concomitant]
     Dosage: 40 MG, DAILY

REACTIONS (1)
  - Interstitial lung disease [Recovering/Resolving]
